FAERS Safety Report 4266777-3 (Version None)
Quarter: 2004Q1

REPORT INFORMATION
  Report Type: 
  Country: None (occurrence: None)
  Receive Date: 20040108
  Receipt Date: 20021216
  Transmission Date: 20041129
  Serious: No
  Sender: FDA-Public Use
  Company Number: US-BRISTOL-MYERS SQUIBB COMPANY-12136925

PATIENT
  Age: 80 Year
  Sex: Male

DRUGS (5)
  1. CARDIOLITE [Suspect]
     Indication: CORONARY ARTERY DISEASE
     Dosage: ROUTE: ^INJECTION^
     Route: 051
     Dates: start: 20021115, end: 20021115
  2. MONOPRIL [Concomitant]
  3. LIPITOR [Concomitant]
  4. ZANTAC [Concomitant]
  5. ASPIRIN [Concomitant]
     Dosage: DAILY

REACTIONS (6)
  - ASTHENIA [None]
  - CONFUSIONAL STATE [None]
  - DEHYDRATION [None]
  - DIZZINESS [None]
  - ERYTHEMA [None]
  - HEADACHE [None]
